FAERS Safety Report 10665517 (Version 3)
Quarter: 2015Q1

REPORT INFORMATION
  Report Type: Report from Study
  Country: FR (occurrence: FR)
  Receive Date: 20141219
  Receipt Date: 20150213
  Transmission Date: 20150720
  Serious: Yes (Hospitalization)
  Sender: FDA-Public Use
  Company Number: FR-B.I. PHARMACEUTICALS,INC./RIDGEFIELD-2014-BI-60239BI

PATIENT
  Age: 57 Year
  Sex: Male
  Weight: 93 kg

DRUGS (4)
  1. BIBF 1120 [Suspect]
     Active Substance: NINTEDANIB
     Indication: IDIOPATHIC PULMONARY FIBROSIS
     Dosage: 200 MG
     Route: 048
     Dates: start: 20121017
  2. ERYFLUID [Concomitant]
     Active Substance: ERYTHROMYCIN
     Indication: ROSACEA
     Route: 065
     Dates: start: 20141117
  3. KARDEGIC [Suspect]
     Active Substance: ASPIRIN LYSINE
     Indication: CORONARY ARTERY DISEASE
     Dosage: 75 MG
     Route: 048
     Dates: start: 20140718
  4. INEXIUM [Concomitant]
     Active Substance: ESOMEPRAZOLE
     Indication: GASTROOESOPHAGEAL REFLUX DISEASE
     Dosage: 200 MG
     Route: 048
     Dates: start: 20140719

REACTIONS (2)
  - Gastritis [Not Recovered/Not Resolved]
  - Rectal haemorrhage [Recovered/Resolved]

NARRATIVE: CASE EVENT DATE: 20140922
